FAERS Safety Report 20622756 (Version 2)
Quarter: 2022Q2

REPORT INFORMATION
  Report Type: Spontaneous
  Country: PT (occurrence: PT)
  Receive Date: 20220322
  Receipt Date: 20220408
  Transmission Date: 20220721
  Serious: Yes (Hospitalization, Other)
  Sender: FDA-Public Use
  Company Number: PT-ELI_LILLY_AND_COMPANY-PT202203005467

PATIENT
  Sex: Female
  Weight: 70 kg

DRUGS (2)
  1. TALTZ [Suspect]
     Active Substance: IXEKIZUMAB
     Indication: Psoriatic arthropathy
     Dosage: UNK, UNKNOWN
     Route: 065
     Dates: start: 201812
  2. TALTZ [Suspect]
     Active Substance: IXEKIZUMAB
     Dosage: 160 MG, SINGLE, INDUCTION DOSE, RESTARTED
     Route: 065

REACTIONS (1)
  - Papillary thyroid cancer [Unknown]
